FAERS Safety Report 16598825 (Version 1)
Quarter: 2019Q3

REPORT INFORMATION
  Report Type: Spontaneous
  Country: US (occurrence: US)
  Receive Date: 20190719
  Receipt Date: 20190719
  Transmission Date: 20191004
  Serious: Yes (Hospitalization, Other)
  Sender: FDA-Public Use
  Company Number: US-SA-2019SA194632

PATIENT
  Age: 57 Year
  Sex: Male
  Weight: 83 kg

DRUGS (10)
  1. SODIUM CHLORIDE. [Concomitant]
     Active Substance: SODIUM CHLORIDE
     Dosage: 0.90 %
     Route: 042
     Dates: start: 20190501
  2. STERILE WATER [Concomitant]
     Active Substance: WATER
     Dosage: 17 ML, PRN
     Route: 042
     Dates: start: 20190501
  3. EPINEPHRINE. [Concomitant]
     Active Substance: EPINEPHRINE
     Indication: ANAPHYLACTIC REACTION
     Dosage: 0.3 MG, QD
     Route: 030
     Dates: start: 20190501
  4. ULORIC [Concomitant]
     Active Substance: FEBUXOSTAT
     Dosage: 1 DF, QD
     Route: 048
     Dates: start: 20180424
  5. ASPIRIN [ACETYLSALICYLIC ACID] [Concomitant]
     Active Substance: ASPIRIN
     Dosage: 1 DF, QD
     Route: 048
     Dates: start: 20180424
  6. VITAMIN D3 [Concomitant]
     Active Substance: CHOLECALCIFEROL
     Dosage: 1 DF, QW
     Route: 048
     Dates: start: 20180424
  7. NORMAL SALINE [Concomitant]
     Active Substance: SODIUM CHLORIDE
     Dosage: 0.90 %
     Route: 042
     Dates: start: 20190501
  8. METOLAZONE. [Concomitant]
     Active Substance: METOLAZONE
     Dosage: 1 DF, QD
     Route: 048
     Dates: start: 20190219
  9. HYDROCHLOROTHIAZIDE. [Concomitant]
     Active Substance: HYDROCHLOROTHIAZIDE
     Dosage: 1 DF, QD
     Route: 048
     Dates: start: 20180424
  10. FABRAZYME [Suspect]
     Active Substance: AGALSIDASE BETA
     Indication: FABRY^S DISEASE
     Dosage: 85 MG, QOW
     Route: 042
     Dates: start: 20180424

REACTIONS (2)
  - Shoulder operation [Unknown]
  - Road traffic accident [Unknown]
